FAERS Safety Report 8205789-1 (Version None)
Quarter: 2012Q1

REPORT INFORMATION
  Report Type: 
  Country: None (occurrence: None)
  Receive Date: 20120313
  Receipt Date: 20120310
  Transmission Date: 20120608
  Serious: No
  Sender: FDA-Public Use
  Company Number: US-PFIZER INC-2012063962

PATIENT
  Sex: Female
  Weight: 107 kg

DRUGS (15)
  1. LIPITOR [Suspect]
     Indication: BLOOD CHOLESTEROL INCREASED
     Dosage: UNK
     Route: 048
  2. DIAZEPAM [Suspect]
     Indication: DEPRESSION
     Dosage: 5 MG, 2X/DAY
     Route: 048
  3. DIAZEPAM [Suspect]
     Indication: ANXIETY
  4. ALBUTEROL SULFATE [Suspect]
     Indication: ASTHMA
     Dosage: UNK
  5. FLUOXETINE HYDROCHLORIDE [Suspect]
     Indication: DEPRESSION
     Dosage: 40 MG, DAILY
     Route: 048
  6. FLUOXETINE HYDROCHLORIDE [Suspect]
     Indication: ANXIETY
  7. ADVAIR DISKUS 100/50 [Suspect]
     Indication: ASTHMA
  8. ALBUTEROL [Suspect]
     Indication: ASTHMA
     Dosage: UNK
  9. ADVAIR DISKUS 100/50 [Suspect]
     Indication: CHRONIC OBSTRUCTIVE PULMONARY DISEASE
     Dosage: UNK, 2X/DAY
  10. METFORMIN HCL [Suspect]
     Indication: DIABETES MELLITUS
     Dosage: 500 MG, 2X/DAY
     Route: 048
  11. SINGULAIR [Suspect]
     Indication: ASTHMA
     Dosage: 10 MG, DAILY AT NIGHT
     Route: 048
  12. INDOMETHACIN [Suspect]
     Indication: GOUT
     Dosage: 50 MG, AS NEEDED IN EVERY 8 TO 12 HOURS
     Route: 048
  13. ZOLPIDEM TARTRATE [Suspect]
     Indication: SLEEP DISORDER
     Dosage: 10 MG, DAILY
     Route: 048
  14. BENICAR HCT [Suspect]
     Indication: HYPERTENSION
     Dosage: [OLMESARTAN MEDOXOMIL 20]/[HYDROCHLOROTHIAZIDE 12.5 MG], DAILY
     Route: 048
     Dates: start: 20110101
  15. PREDNISONE [Suspect]
     Indication: COUGH
     Dosage: UNK

REACTIONS (2)
  - BLOOD CHOLESTEROL INCREASED [None]
  - FLATULENCE [None]
